FAERS Safety Report 6642467-4 (Version None)
Quarter: 2010Q1

REPORT INFORMATION
  Report Type: 
  Country: None (occurrence: None)
  Receive Date: 20100319
  Receipt Date: 20100317
  Transmission Date: 20100710
  Serious: Yes (Death, Hospitalization)
  Sender: FDA-Public Use
  Company Number: BR-ROCHE-689073

PATIENT
  Sex: Female
  Weight: 50 kg

DRUGS (4)
  1. PEG-INTERFERON ALFA 2A (RO 25-8310) [Suspect]
     Dosage: LAST DOSE PRIOR TO EVENT ON 1 FEB 2010; DOSAGE FORM REPORTED AS 0.5 ML
     Route: 058
     Dates: start: 20090831
  2. RIBAVIRIN [Suspect]
     Dosage: LAST DOSE PRIOR TO SAE: 5 FEB 2010; DOSE FORM REPORTED AS 600
     Route: 048
     Dates: start: 20090831
  3. FUROSEMIDE [Concomitant]
     Dates: start: 20091001, end: 20100301
  4. SPIRONOLACTONE [Concomitant]
     Dates: start: 20091001, end: 20100301

REACTIONS (1)
  - UPPER GASTROINTESTINAL HAEMORRHAGE [None]
